FAERS Safety Report 25499170 (Version 4)
Quarter: 2025Q4

REPORT INFORMATION
  Report Type: Report from Study
  Country: CA (occurrence: None)
  Receive Date: 20250701
  Receipt Date: 20251211
  Transmission Date: 20260118
  Serious: Yes (Hospitalization)
  Sender: UCB
  Company Number: CA-UCBSA-2025039461

PATIENT
  Age: 59 Year

DRUGS (1)
  1. BIMEKIZUMAB [Suspect]
     Active Substance: BIMEKIZUMAB
     Indication: Psoriasis
     Dosage: 320 MILLIGRAM, EV 8 WEEKS

REACTIONS (4)
  - Vascular device infection [Not Recovered/Not Resolved]
  - Cardiac pacemaker insertion [Unknown]
  - Psoriasis [Unknown]
  - Intentional dose omission [Unknown]
